FAERS Safety Report 9586430 (Version 2)
Quarter: 2013Q4

REPORT INFORMATION
  Report Type: Spontaneous
  Country: IT (occurrence: IT)
  Receive Date: 20131003
  Receipt Date: 20131211
  Transmission Date: 20140711
  Serious: Yes (Hospitalization)
  Sender: FDA-Public Use
  Company Number: IT-PFIZER INC-2013283497

PATIENT
  Age: 72 Year
  Sex: Male

DRUGS (5)
  1. FELDENE [Suspect]
     Indication: SCIATICA
     Dosage: 1 DF, 1X/DAY
     Route: 030
     Dates: start: 20130807, end: 20130812
  2. COUMADINE [Suspect]
     Dosage: 5 MG, 1X/DAY
     Route: 048
     Dates: start: 20000101, end: 20130812
  3. LANOXIN [Concomitant]
  4. ZYLORIC [Concomitant]
  5. PANTOPRAZOLE [Concomitant]

REACTIONS (4)
  - Gastrointestinal haemorrhage [Recovering/Resolving]
  - Presyncope [Recovering/Resolving]
  - Faeces discoloured [Recovering/Resolving]
  - Hyperhidrosis [Recovering/Resolving]
